FAERS Safety Report 25802790 (Version 2)
Quarter: 2025Q3

REPORT INFORMATION
  Report Type: Spontaneous
  Country: US (occurrence: US)
  Receive Date: 20250915
  Receipt Date: 20250924
  Transmission Date: 20251021
  Serious: Yes (Other)
  Sender: CSL BEHRING
  Company Number: US-BEH-2025218440

PATIENT
  Age: 29 Year
  Sex: Male

DRUGS (4)
  1. HIZENTRA [Suspect]
     Active Substance: HUMAN IMMUNOGLOBULIN G
     Indication: Immunodeficiency common variable
     Dosage: 8 G, QW
     Route: 058
     Dates: start: 20250904
  2. HIZENTRA [Suspect]
     Active Substance: HUMAN IMMUNOGLOBULIN G
     Dosage: 8 G, QW
     Route: 058
     Dates: start: 202509
  3. EPINEPHRINE [Concomitant]
     Active Substance: EPINEPHRINE
  4. VYVANSE [Concomitant]
     Active Substance: LISDEXAMFETAMINE DIMESYLATE

REACTIONS (17)
  - Mental impairment [Unknown]
  - Feeling abnormal [Unknown]
  - Feeling of relaxation [Unknown]
  - Fatigue [Unknown]
  - Feeling of body temperature change [Unknown]
  - Headache [Unknown]
  - Neck pain [Unknown]
  - Dizziness [Unknown]
  - Gait disturbance [Unknown]
  - Chest pain [Unknown]
  - Nervous system disorder [Not Recovered/Not Resolved]
  - Condition aggravated [Not Recovered/Not Resolved]
  - Hypotension [Unknown]
  - Dizziness [Unknown]
  - Amnesia [Not Recovered/Not Resolved]
  - Tachycardia [Unknown]
  - Loss of personal independence in daily activities [Unknown]

NARRATIVE: CASE EVENT DATE: 20250901
